FAERS Safety Report 18636998 (Version 1)
Quarter: 2020Q4

REPORT INFORMATION
  Report Type: Spontaneous
  Country: US (occurrence: US)
  Receive Date: 20201218
  Receipt Date: 20201218
  Transmission Date: 20210114
  Serious: No
  Sender: FDA-Public Use
  Company Number: US-ENDO PHARMACEUTICALS INC-2020-000772

PATIENT
  Age: 48 Year
  Sex: Male

DRUGS (1)
  1. XIAFLEX [Suspect]
     Active Substance: COLLAGENASE CLOSTRIDIUM HISTOLYTICUM
     Indication: PEYRONIE^S DISEASE
     Dosage: 0.58 MG, UNKNOWN
     Route: 065

REACTIONS (3)
  - Tenderness [Recovered/Resolved]
  - Swelling [Recovered/Resolved]
  - Penile contusion [Recovering/Resolving]

NARRATIVE: CASE EVENT DATE: 20200109
